FAERS Safety Report 8790542 (Version 1)
Quarter: 2012Q4

REPORT INFORMATION
  Report Type: Spontaneous
  Country: US (occurrence: None)
  Receive Date: 20120912
  Receipt Date: 20120912
  Transmission Date: 20130627
  Serious: Yes (Other)
  Sender: FDA-Public Use
  Company Number: None

PATIENT
  Age: 55 Year
  Sex: Female
  Weight: 83.92 kg

DRUGS (2)
  1. CELEBREX [Suspect]
     Indication: NECK PAIN
     Route: 048
  2. CELEBREX [Suspect]
     Indication: INFLAMMATION
     Route: 048

REACTIONS (2)
  - Hypersensitivity [None]
  - Drug hypersensitivity [None]
